FAERS Safety Report 10934174 (Version 3)
Quarter: 2015Q2

REPORT INFORMATION
  Report Type: Report from Study
  Country: US (occurrence: US)
  Receive Date: 20150320
  Receipt Date: 20150413
  Transmission Date: 20150821
  Serious: Yes (Hospitalization, Other)
  Sender: FDA-Public Use
  Company Number: PHHY2015US030120

PATIENT
  Age: 67 Year
  Sex: Male

DRUGS (3)
  1. OXALIPLATIN. [Suspect]
     Active Substance: OXALIPLATIN
     Indication: COLORECTAL CANCER METASTATIC
     Dosage: 174 MG, 1 IN 14 D
     Route: 042
     Dates: start: 20141229
  2. FOLINIC ACID [Suspect]
     Active Substance: LEUCOVORIN
     Indication: COLORECTAL CANCER METASTATIC
     Dosage: 820 MG, 1 IN 14 D
     Route: 042
     Dates: start: 20141229
  3. FLUOROURACIL. [Suspect]
     Active Substance: FLUOROURACIL
     Indication: COLORECTAL CANCER METASTATIC
     Dosage: 4920 MG, 1 IN 14 D
     Route: 042
     Dates: start: 20141229, end: 20141229

REACTIONS (6)
  - Splenic abscess [Recovered/Resolved]
  - Splenic infarction [Unknown]
  - Mental status changes [Recovering/Resolving]
  - Infection [Unknown]
  - Asthenia [Recovering/Resolving]
  - Pneumonia [Unknown]

NARRATIVE: CASE EVENT DATE: 20150114
